FAERS Safety Report 19791213 (Version 2)
Quarter: 2021Q3

REPORT INFORMATION
  Report Type: Spontaneous
  Country: US (occurrence: US)
  Receive Date: 20210906
  Receipt Date: 20210909
  Transmission Date: 20211014
  Serious: No
  Sender: FDA-Public Use
  Company Number: US-APOTEX-2021AP032301

PATIENT
  Sex: Female

DRUGS (1)
  1. FENTANYL TRANSDERMAL SYSTEM [Suspect]
     Active Substance: FENTANYL
     Indication: PRODUCT USED FOR UNKNOWN INDICATION
     Dosage: UNK, 5 PATCH, ONE DOSE EVERY FOURTY EIGHT HOURS
     Route: 062

REACTIONS (3)
  - Product substitution issue [Unknown]
  - Drug effect less than expected [Unknown]
  - Product adhesion issue [Unknown]
